FAERS Safety Report 12409215 (Version 4)
Quarter: 2019Q1

REPORT INFORMATION
  Report Type: Spontaneous
  Country: US (occurrence: US)
  Receive Date: 20160526
  Receipt Date: 20190225
  Transmission Date: 20190417
  Serious: Yes (Hospitalization, Other)
  Sender: FDA-Public Use
  Company Number: US-DSJP-DSU-2016-108899

PATIENT

DRUGS (2)
  1. BENICAR [Suspect]
     Active Substance: OLMESARTAN MEDOXOMIL
     Indication: HYPERTENSION
     Dosage: 20 MG, QD
     Route: 048
     Dates: start: 20070101, end: 201510
  2. LISINOPRIL. [Concomitant]
     Active Substance: LISINOPRIL
     Indication: PRODUCT USED FOR UNKNOWN INDICATION
     Dosage: 20 MG, UNK

REACTIONS (19)
  - Diverticulitis [Unknown]
  - Sprue-like enteropathy [Recovering/Resolving]
  - Nephrolithiasis [Unknown]
  - Diverticulum intestinal [Unknown]
  - Serositis [Unknown]
  - Haemorrhoids [Unknown]
  - Large intestine perforation [Not Recovered/Not Resolved]
  - Hernia [Not Recovered/Not Resolved]
  - Hepatic steatosis [Unknown]
  - Colonic fistula [Unknown]
  - Endometriosis [Unknown]
  - Large intestine polyp [Recovered/Resolved]
  - Urinary tract infection [Unknown]
  - Small intestinal obstruction [Not Recovered/Not Resolved]
  - Kidney angiomyolipoma [Unknown]
  - Acute kidney injury [Unknown]
  - Mesenteric abscess [Unknown]
  - Colostomy [Not Recovered/Not Resolved]
  - Intestinal perforation [Unknown]

NARRATIVE: CASE EVENT DATE: 20090202
